FAERS Safety Report 5118777-9 (Version None)
Quarter: 2006Q4

REPORT INFORMATION
  Report Type: 
  Country: None (occurrence: None)
  Receive Date: 20061002
  Receipt Date: 20060919
  Transmission Date: 20070319
  Serious: Yes (Hospitalization)
  Sender: FDA-Public Use
  Company Number: US-ROCHE-463813

PATIENT
  Age: 67 Year
  Sex: Male

DRUGS (18)
  1. CAPECITABINE [Suspect]
     Route: 065
     Dates: start: 20060711, end: 20060801
  2. OXALIPLATIN [Suspect]
     Route: 042
     Dates: start: 20060711, end: 20060731
  3. HYDROXYZINE [Concomitant]
     Indication: INSOMNIA
     Dosage: TAKEN AT BEDTIME.
     Dates: start: 20060115
  4. PRILOSEC [Concomitant]
     Dates: start: 20060115, end: 20060811
  5. PROTONIX [Concomitant]
     Dates: start: 20060811
  6. SENOKOT [Concomitant]
     Indication: CONSTIPATION
     Dates: start: 20050315
  7. PREDNISONE [Concomitant]
     Indication: PSORIASIS
     Dates: start: 20060415
  8. NORVASC [Concomitant]
     Indication: HYPERTENSION
     Dates: start: 20060415
  9. ALLEGRA [Concomitant]
     Indication: SEASONAL ALLERGY
     Dates: start: 20060115
  10. KAY CIEL DURA-TABS [Concomitant]
     Indication: HYPOKALAEMIA
     Dates: start: 20060811
  11. FLAGYL [Concomitant]
     Indication: DIARRHOEA
     Dates: start: 20060818, end: 20060826
  12. MAG-OX [Concomitant]
     Indication: HYPOMAGNESAEMIA
     Dates: start: 20060811
  13. OCTREOTIDE ACETATE [Concomitant]
     Indication: DIARRHOEA
     Dates: start: 20060811, end: 20060825
  14. CYCLOSPORINE [Concomitant]
     Indication: DIARRHOEA
     Dates: start: 20060811, end: 20060814
  15. WELLBUTRIN [Concomitant]
     Dates: start: 20060811
  16. BICARB [Concomitant]
     Indication: BLOOD BICARBONATE DECREASED
     Dates: start: 20060411
  17. CORTISONE ACETATE [Concomitant]
     Indication: RASH
     Dosage: AS NEEDED.
     Dates: start: 20060411
  18. LOMOTIL (LOPERAMIDE) [Concomitant]
     Indication: DIARRHOEA
     Dates: start: 20060808

REACTIONS (4)
  - DEHYDRATION [None]
  - ENTERITIS [None]
  - HYPOVOLAEMIA [None]
  - METABOLIC ACIDOSIS [None]
